FAERS Safety Report 19072492 (Version 1)
Quarter: 2021Q1

REPORT INFORMATION
  Report Type: Spontaneous
  Country: US (occurrence: US)
  Receive Date: 20210330
  Receipt Date: 20210330
  Transmission Date: 20210420
  Serious: Yes (Other)
  Sender: FDA-Public Use
  Company Number: US-GLAXOSMITHKLINE-US2021GSK068715

PATIENT
  Sex: Female

DRUGS (14)
  1. RANITIDINE. [Suspect]
     Active Substance: RANITIDINE
     Indication: CARDIAC DISORDER
     Dosage: 150 MG, QD
     Route: 065
     Dates: start: 201601, end: 201901
  2. RANITIDINE. [Suspect]
     Active Substance: RANITIDINE
     Indication: PAIN
  3. ZANTAC [Suspect]
     Active Substance: RANITIDINE HYDROCHLORIDE
     Indication: PAIN
  4. RANITIDINE. [Suspect]
     Active Substance: RANITIDINE
     Indication: PAIN
  5. RANITIDINE CAPSULE [Suspect]
     Active Substance: RANITIDINE
     Indication: PAIN
  6. RANITIDINE. [Suspect]
     Active Substance: RANITIDINE
     Indication: CARDIAC DISORDER
     Dosage: 150 MG, QD
     Route: 065
     Dates: start: 201601, end: 201901
  7. RANITIDINE. [Suspect]
     Active Substance: RANITIDINE
     Indication: CARDIAC DISORDER
     Dosage: 150 MG, QD
     Route: 065
     Dates: start: 201601, end: 201901
  8. ZANTAC [Suspect]
     Active Substance: RANITIDINE HYDROCHLORIDE
     Indication: CARDIAC DISORDER
  9. ZANTAC [Suspect]
     Active Substance: RANITIDINE HYDROCHLORIDE
     Indication: PAIN
  10. RANITIDINE CAPSULE [Suspect]
     Active Substance: RANITIDINE
     Indication: CARDIAC DISORDER
     Dosage: 150 MG, QD
     Route: 065
     Dates: start: 201601, end: 201901
  11. ZANTAC [Suspect]
     Active Substance: RANITIDINE HYDROCHLORIDE
     Indication: PAIN
     Dosage: 150 MG, QD
     Route: 065
     Dates: start: 201601, end: 201901
  12. RANITIDINE. [Suspect]
     Active Substance: RANITIDINE
     Indication: PAIN
  13. ZANTAC [Suspect]
     Active Substance: RANITIDINE HYDROCHLORIDE
     Indication: CARDIAC DISORDER
     Dosage: 150 MG, QD
     Route: 065
     Dates: start: 201601, end: 201901
  14. ZANTAC [Suspect]
     Active Substance: RANITIDINE HYDROCHLORIDE
     Indication: CARDIAC DISORDER
     Dosage: 150 MG, QD
     Route: 065
     Dates: start: 201601, end: 201901

REACTIONS (1)
  - Bladder cancer [Unknown]
